FAERS Safety Report 26052080 (Version 1)
Quarter: 2025Q4

REPORT INFORMATION
  Report Type: Spontaneous
  Country: EU (occurrence: EU)
  Receive Date: 20251117
  Receipt Date: 20251117
  Transmission Date: 20260118
  Serious: Yes (Hospitalization, Other)
  Sender: HIKMA
  Company Number: None

PATIENT
  Age: 82 Year
  Sex: Female
  Weight: 75 kg

DRUGS (3)
  1. CARBOPLATIN [Suspect]
     Active Substance: CARBOPLATIN
     Indication: Ovarian epithelial cancer
     Dosage: 1 DOSAGE FORM (C1)
     Route: 042
     Dates: start: 20250831, end: 20250831
  2. CARBOPLATIN [Suspect]
     Active Substance: CARBOPLATIN
     Dosage: 1 DOSAGE FORM (C2)
     Route: 042
     Dates: start: 20250924, end: 20250924
  3. CARBOPLATIN [Suspect]
     Active Substance: CARBOPLATIN
     Dosage: 1 DOSAGE FORM (C3)
     Route: 042
     Dates: start: 20251014, end: 20251014

REACTIONS (1)
  - Autoimmune haemolytic anaemia [Recovering/Resolving]

NARRATIVE: CASE EVENT DATE: 20251019
